FAERS Safety Report 5746070-X (Version None)
Quarter: 2008Q2

REPORT INFORMATION
  Report Type: 
  Country: None (occurrence: None)
  Receive Date: 20080522
  Receipt Date: 20080513
  Transmission Date: 20081010
  Serious: Yes (Disabling)
  Sender: FDA-Public Use
  Company Number: GB-JNJFOC-20060406038

PATIENT
  Age: 61 Year
  Sex: Male
  Weight: 56.6 kg

DRUGS (6)
  1. REMICADE [Suspect]
     Indication: SWEAT GLAND INFECTION
     Route: 042
  2. CIPROFLOXACIN HCL [Concomitant]
     Indication: SWEAT GLAND INFECTION
     Route: 048
  3. METRONIDAZOLE HCL [Concomitant]
     Indication: SWEAT GLAND INFECTION
     Route: 048
  4. CEFUROXIME [Concomitant]
     Indication: SWEAT GLAND INFECTION
     Route: 042
  5. GENTAMICIN [Concomitant]
     Indication: SWEAT GLAND INFECTION
     Route: 042
  6. SANDOK [Concomitant]

REACTIONS (2)
  - ASTHENIA [None]
  - AXONAL NEUROPATHY [None]
